FAERS Safety Report 24824471 (Version 1)
Quarter: 2025Q1

REPORT INFORMATION
  Report Type: Spontaneous
  Country: FR (occurrence: FR)
  Receive Date: 20250109
  Receipt Date: 20250109
  Transmission Date: 20250409
  Serious: Yes (Death)
  Sender: ACCORD
  Company Number: None

PATIENT
  Age: 72 Year
  Sex: Female
  Weight: 55 kg

DRUGS (14)
  1. CARBOPLATIN [Suspect]
     Active Substance: CARBOPLATIN
     Indication: Bronchial carcinoma
     Dates: start: 20241024
  2. PEMETREXED [Suspect]
     Active Substance: PEMETREXED
     Indication: Bronchial carcinoma
     Dates: start: 20241024
  3. AMIVANTAMAB [Suspect]
     Active Substance: AMIVANTAMAB
     Indication: Metastatic bronchial carcinoma
     Dates: start: 20241024
  4. APREPITANT [Concomitant]
     Active Substance: APREPITANT
  5. PREDNISOLONE [Concomitant]
     Active Substance: PREDNISOLONE
  6. METHYLPREDNISOLONE [Concomitant]
     Active Substance: METHYLPREDNISOLONE
  7. ONDANSETRON [Concomitant]
     Active Substance: ONDANSETRON
  8. ACETAMINOPHEN [Concomitant]
     Active Substance: ACETAMINOPHEN
  9. DEXCHLORPHENIRAMINE MALEATE [Concomitant]
     Active Substance: DEXCHLORPHENIRAMINE MALEATE
  10. ELIQUIS [Concomitant]
     Active Substance: APIXABAN
  11. PAROXETINE [Concomitant]
     Active Substance: PAROXETINE
  12. ESOMEPRAZOLE [Concomitant]
     Active Substance: ESOMEPRAZOLE
  13. DOXYCYCLINE [Concomitant]
     Active Substance: DOXYCYCLINE
  14. AMIVANTAMAB [Suspect]
     Active Substance: AMIVANTAMAB
     Indication: Metastatic bronchial carcinoma
     Dates: start: 20241024

REACTIONS (2)
  - Multiple organ dysfunction syndrome [Fatal]
  - Agranulocytosis [Fatal]

NARRATIVE: CASE EVENT DATE: 20241030
